FAERS Safety Report 20019632 (Version 2)
Quarter: 2021Q4

REPORT INFORMATION
  Report Type: Spontaneous
  Country: US (occurrence: US)
  Receive Date: 20211101
  Receipt Date: 20211126
  Transmission Date: 20220303
  Serious: No
  Sender: FDA-Public Use
  Company Number: US-SUNOVION-2021SUN003997

PATIENT
  Sex: Female

DRUGS (1)
  1. LATUDA [Suspect]
     Active Substance: LURASIDONE HYDROCHLORIDE
     Indication: Hallucination, auditory
     Dosage: 80 MG
     Route: 048

REACTIONS (3)
  - Drug ineffective [Unknown]
  - Malaise [Unknown]
  - Off label use [Unknown]
